FAERS Safety Report 4576063-X (Version None)
Quarter: 2005Q1

REPORT INFORMATION
  Report Type: 
  Country: None (occurrence: None)
  Receive Date: 20050204
  Receipt Date: 20041119
  Transmission Date: 20050727
  Serious: Yes (Other)
  Sender: FDA-Public Use
  Company Number: 2004097805

PATIENT
  Age: 46 Year
  Sex: Female

DRUGS (6)
  1. CELEBREX [Suspect]
     Indication: ILL-DEFINED DISORDER
     Dosage: ORAL
     Route: 048
  2. INTERFERON BETA (INTERFERON BETA) [Suspect]
     Indication: ILL-DEFINED DISORDER
     Dosage: (30 MCG, 1 WK), INTRAMUSCULAR
     Route: 030
  3. PRAMIPEXOLE (PRAMIPEXOLE0 [Concomitant]
  4. OEMPRAZOLE (OMEPRAZOLE) [Concomitant]
  5. SERTRALINE HCL [Concomitant]
  6. ALL OTHER THERAPEUTIC PRODUCTS (ALL OTHER THERAPEUTIC PRODUCTS) [Concomitant]

REACTIONS (6)
  - ANAEMIA [None]
  - BACK PAIN [None]
  - CARDIAC FAILURE CONGESTIVE [None]
  - CARDIOMEGALY [None]
  - HYPERVENTILATION [None]
  - PULMONARY OEDEMA [None]
